FAERS Safety Report 6013852-9 (Version None)
Quarter: 2008Q4

REPORT INFORMATION
  Report Type: 
  Country: None (occurrence: None)
  Receive Date: 20081218
  Receipt Date: 20081218
  Transmission Date: 20090506
  Serious: Yes (Hospitalization)
  Sender: FDA-Public Use
  Company Number: None

PATIENT
  Sex: Female
  Weight: 13.6 kg

DRUGS (2)
  1. DASATINIB 20 MG BRISTOL MEYERS SQIBB CO. [Suspect]
     Indication: ACUTE LYMPHOCYTIC LEUKAEMIA
     Dosage: 20 MG Q 12 HR PO
     Route: 048
     Dates: start: 20081208, end: 20081208
  2. DASATINIB 20 MG BRISTOL MEYERS SQIBB CO. [Suspect]
     Indication: CHROMOSOME ANALYSIS ABNORMAL
     Dosage: 20 MG Q 12 HR PO
     Route: 048
     Dates: start: 20081208, end: 20081208

REACTIONS (2)
  - ENCEPHALOPATHY [None]
  - HYPERTENSION [None]
